FAERS Safety Report 8273076-1 (Version None)
Quarter: 2012Q2

REPORT INFORMATION
  Report Type: 
  Country: None (occurrence: None)
  Receive Date: 20120411
  Receipt Date: 20120405
  Transmission Date: 20120825
  Serious: No
  Sender: FDA-Public Use
  Company Number: US-PFIZER INC-2012086899

PATIENT
  Sex: Female
  Weight: 156 kg

DRUGS (5)
  1. LEVOTHYROXINE [Concomitant]
     Indication: HYPOTHYROIDISM
     Dosage: UNK
  2. GEODON [Suspect]
     Indication: MENTAL DISORDER
     Dosage: 80 MG, 1X/DAY
     Route: 048
     Dates: start: 20030101
  3. ZYPREXA [Concomitant]
     Dosage: UNK
  4. METFORMIN [Concomitant]
     Indication: DIABETES MELLITUS
     Dosage: UNK
  5. BENADRYL [Concomitant]
     Dosage: UNK

REACTIONS (4)
  - SOMNOLENCE [None]
  - FATIGUE [None]
  - WEIGHT INCREASED [None]
  - DRUG EFFECT DECREASED [None]
